FAERS Safety Report 8775838 (Version 3)
Quarter: 2012Q4

REPORT INFORMATION
  Report Type: 
  Country: SE (occurrence: SE)
  Receive Date: 20120910
  Receipt Date: 20121101
  Transmission Date: 20130627
  Serious: Yes (Hospitalization, Other)
  Sender: FDA-Public Use
  Company Number: SE-ASTRAZENECA-2012SE65740

PATIENT
  Sex: Male

DRUGS (10)
  1. ATACAND [Suspect]
     Route: 048
  2. SIFROL [Suspect]
     Indication: PARKINSONISM
     Route: 065
  3. ALFUZOSIN [Concomitant]
  4. ZOLPIDEM [Concomitant]
  5. CIALIS [Concomitant]
  6. PANODIL [Concomitant]
  7. INDERAL [Concomitant]
  8. MADOPARK [Concomitant]
     Dosage: 100/25 MG
  9. DIMOR [Concomitant]
  10. ALLOPURINOL [Concomitant]

REACTIONS (6)
  - Hallucination [Recovered/Resolved with Sequelae]
  - Hyperkalaemia [Recovered/Resolved with Sequelae]
  - Renal failure acute [Recovered/Resolved with Sequelae]
  - Lung infiltration [Unknown]
  - Pyrexia [Unknown]
  - Urinary tract infection [Unknown]
